FAERS Safety Report 7742163-6 (Version None)
Quarter: 2011Q3

REPORT INFORMATION
  Report Type: 
  Country: None (occurrence: None)
  Receive Date: 20110912
  Receipt Date: 20110909
  Transmission Date: 20111222
  Serious: Yes (Death)
  Sender: FDA-Public Use
  Company Number: PHHY2011NZ73610

PATIENT
  Sex: Female

DRUGS (2)
  1. CLOZAPINE [Suspect]
     Indication: SCHIZOPHRENIA
     Dates: start: 20060216, end: 20110705
  2. CLOZAPINE [Suspect]
     Dosage: 300 MG, NOCTE

REACTIONS (1)
  - BRONCHOPNEUMONIA [None]
